FAERS Safety Report 7383372-8 (Version None)
Quarter: 2011Q1

REPORT INFORMATION
  Report Type: 
  Country: None (occurrence: None)
  Receive Date: 20110330
  Receipt Date: 20101007
  Transmission Date: 20110831
  Serious: Yes (Hospitalization, Other)
  Sender: FDA-Public Use
  Company Number: US-BAYER-201023614NA

PATIENT
  Sex: Female
  Weight: 47.727 kg

DRUGS (2)
  1. ANTIBIOTICS [Concomitant]
     Dosage: ON/OFF SINCE BEFORE 2000
  2. YAZ [Suspect]
     Indication: CONTRACEPTION
     Dosage: 84557A + 83529A
     Route: 048
     Dates: start: 20080101, end: 20090401

REACTIONS (2)
  - SUPRAVENTRICULAR TACHYCARDIA [None]
  - HEART RATE INCREASED [None]
